FAERS Safety Report 6859609-8 (Version None)
Quarter: 2010Q3

REPORT INFORMATION
  Report Type: 
  Country: None (occurrence: None)
  Receive Date: 20100719
  Receipt Date: 20080403
  Transmission Date: 20110219
  Serious: No
  Sender: FDA-Public Use
  Company Number: US-PFIZER INC-2008020889

PATIENT
  Sex: Female
  Weight: 88.5 kg

DRUGS (14)
  1. CHANTIX [Suspect]
     Indication: SMOKING CESSATION THERAPY
     Dosage: BID: EVERY DAY
     Route: 048
     Dates: start: 20080211, end: 20080311
  2. CYMBALTA [Concomitant]
     Indication: BIPOLAR DISORDER
     Route: 048
  3. GEODON [Concomitant]
     Indication: BIPOLAR DISORDER
     Route: 048
  4. TRILEPTAL [Concomitant]
     Indication: BIPOLAR DISORDER
     Route: 048
  5. LISINOPRIL [Concomitant]
     Indication: HYPERTENSION
     Route: 048
  6. MOBIC [Concomitant]
     Indication: ARTHRITIS
     Route: 048
  7. PREVACID [Concomitant]
     Indication: IRRITABLE BOWEL SYNDROME
     Route: 048
  8. ELMIRON [Concomitant]
  9. HYDROXYZINE [Concomitant]
  10. KLONOPIN [Concomitant]
  11. ALL OTHER THERAPEUTIC PRODUCTS [Concomitant]
  12. NEXIUM [Concomitant]
  13. LACTULOSE [Concomitant]
  14. TRAZODONE HYDROCHLORIDE [Concomitant]

REACTIONS (5)
  - ABNORMAL DREAMS [None]
  - FLATULENCE [None]
  - INSOMNIA [None]
  - POOR QUALITY SLEEP [None]
  - THINKING ABNORMAL [None]
